FAERS Safety Report 8997147 (Version 1)
Quarter: 2013Q1

REPORT INFORMATION
  Report Type: Spontaneous
  Country: US (occurrence: None)
  Receive Date: 20130102
  Receipt Date: 20130102
  Transmission Date: 20140127
  Serious: Yes (Other)
  Sender: FDA-Public Use
  Company Number: None

PATIENT
  Age: 56 Year
  Sex: Male
  Weight: 89.4 kg

DRUGS (1)
  1. PAZOPANIB [Suspect]
     Route: 048
     Dates: start: 20121109, end: 20121227

REACTIONS (2)
  - Fatigue [None]
  - Hepatic enzyme increased [None]
